FAERS Safety Report 7334428-7 (Version None)
Quarter: 2011Q1

REPORT INFORMATION
  Report Type: 
  Country: None (occurrence: None)
  Receive Date: 20110307
  Receipt Date: 20110225
  Transmission Date: 20110831
  Serious: Yes (Other)
  Sender: FDA-Public Use
  Company Number: PHHY2011US13506

PATIENT
  Sex: Female

DRUGS (12)
  1. LUNESTA [Concomitant]
     Dosage: 3 MG, PRN
  2. CALCIUM W/VITAMIN D NOS [Concomitant]
     Dosage: 2 DF, QD
  3. FAMPRIDINE [Concomitant]
     Dosage: 10 MG, QD
  4. LEXAPRO [Concomitant]
     Dosage: 20 MG, QD
  5. VITAMIN B-12 [Concomitant]
     Dosage: 400 MG, QD
  6. PROVIGIL [Concomitant]
     Dosage: 200 MG, QD
  7. LEXAPRO [Concomitant]
     Dosage: 30 MG, QD
  8. GILENYA [Suspect]
     Indication: MULTIPLE SCLEROSIS
     Dosage: 0.5 MG, QD
     Route: 048
     Dates: start: 20110208
  9. ALEVE [Concomitant]
     Dosage: 220 MG, BID
  10. ARICEPT [Concomitant]
     Dosage: 5 MG, QD
  11. VITAMIN D [Concomitant]
     Dosage: 1000 U, QD
  12. DETROL [Concomitant]
     Dosage: 4 MG, QD

REACTIONS (3)
  - EUPHORIC MOOD [None]
  - DEPRESSION [None]
  - SUICIDAL IDEATION [None]
